FAERS Safety Report 14230184 (Version 1)
Quarter: 2017Q4

REPORT INFORMATION
  Report Type: Spontaneous
  Country: US (occurrence: US)
  Receive Date: 20171128
  Receipt Date: 20171128
  Transmission Date: 20180321
  Serious: No
  Sender: FDA-Public Use
  Company Number: US-PURDUE-USA-2017-0136069

PATIENT

DRUGS (1)
  1. INTERMEZZO [Suspect]
     Active Substance: ZOLPIDEM TARTRATE
     Indication: PRODUCT USED FOR UNKNOWN INDICATION
     Route: 048

REACTIONS (2)
  - Product physical issue [Unknown]
  - Drug effect incomplete [Unknown]
